FAERS Safety Report 10522858 (Version 1)
Quarter: 2014Q4

REPORT INFORMATION
  Report Type: Spontaneous
  Country: US (occurrence: US)
  Receive Date: 20141016
  Receipt Date: 20141016
  Transmission Date: 20150528
  Serious: No
  Sender: FDA-Public Use
  Company Number: US-ENDO PHARMACEUTICALS INC.-OXAT20140019

PATIENT
  Sex: Female

DRUGS (1)
  1. OXYCODONE/ACETAMINOPHEN TABLETS 10MG/325MG [Suspect]
     Active Substance: ACETAMINOPHEN\OXYCODONE HYDROCHLORIDE
     Indication: PAIN
     Dosage: 40/1300 MG
     Route: 048

REACTIONS (2)
  - Pruritus [Recovered/Resolved]
  - Drug ineffective [Recovered/Resolved]
